FAERS Safety Report 5817290-0 (Version None)
Quarter: 2008Q3

REPORT INFORMATION
  Report Type: 
  Country: None (occurrence: None)
  Receive Date: 20080722
  Receipt Date: 20080716
  Transmission Date: 20090109
  Serious: Yes (Hospitalization)
  Sender: FDA-Public Use
  Company Number: B0527412A

PATIENT
  Age: 85 Year
  Sex: Female

DRUGS (6)
  1. VALTREX [Suspect]
     Indication: HERPES ZOSTER
     Dosage: 1000MG THREE TIMES PER DAY
     Route: 048
     Dates: start: 20080626, end: 20080629
  2. ARICEPT [Concomitant]
     Indication: DEMENTIA ALZHEIMER'S TYPE
     Dosage: 5MG PER DAY
     Route: 048
  3. NORVASC [Concomitant]
     Indication: HYPERTENSION
     Dosage: 5MG PER DAY
     Route: 048
  4. LIVALO [Concomitant]
     Dosage: 2MG PER DAY
     Route: 048
  5. PURSENNID [Concomitant]
     Indication: CONSTIPATION
     Dosage: 24MG PER DAY
     Route: 048
  6. LOBU [Concomitant]
     Indication: ANALGESIA
     Dosage: 60MG PER DAY
     Route: 048
     Dates: start: 20080627, end: 20080629

REACTIONS (4)
  - ALTERED STATE OF CONSCIOUSNESS [None]
  - APHASIA [None]
  - ASTHENIA [None]
  - DECREASED APPETITE [None]
